FAERS Safety Report 5004366-3 (Version None)
Quarter: 2006Q2

REPORT INFORMATION
  Report Type: 
  Country: None (occurrence: None)
  Receive Date: 20060517
  Receipt Date: 20060516
  Transmission Date: 20061013
  Serious: Yes (Hospitalization)
  Sender: FDA-Public Use
  Company Number: FR-GLAXOSMITHKLINE-B0423945A

PATIENT
  Age: 71 Year
  Sex: Male
  Weight: 64 kg

DRUGS (8)
  1. FORTUM [Suspect]
     Indication: LUNG DISORDER
     Dosage: 6G PER DAY
     Route: 042
     Dates: start: 20060314, end: 20060321
  2. GENTAMICIN [Suspect]
     Dosage: 180MG PER DAY
     Route: 042
     Dates: start: 20060320, end: 20060322
  3. VANCOMYCIN [Suspect]
     Indication: LUNG DISORDER
     Dosage: 3G PER DAY
     Route: 042
     Dates: start: 20060310, end: 20060324
  4. GRANOCYTE [Concomitant]
     Dosage: 34IU PER DAY
     Route: 065
     Dates: start: 20060315, end: 20060324
  5. PREVISCAN [Concomitant]
     Dosage: 1TAB AT NIGHT
     Route: 048
  6. CORVASAL [Concomitant]
     Dosage: 3TAB PER DAY
     Route: 048
  7. AMLOR [Concomitant]
     Dosage: 2TAB PER DAY
     Route: 048
  8. NITRIDERM 10 MG [Concomitant]
     Route: 050

REACTIONS (4)
  - DEEP VEIN THROMBOSIS [None]
  - INFLAMMATION [None]
  - PHLEBITIS [None]
  - PYREXIA [None]
